FAERS Safety Report 9566597 (Version 1)
Quarter: 2013Q3

REPORT INFORMATION
  Report Type: Spontaneous
  Country: US (occurrence: US)
  Receive Date: 20130930
  Receipt Date: 20130930
  Transmission Date: 20140515
  Serious: No
  Sender: FDA-Public Use
  Company Number: US-AMGEN-USASP2012062280

PATIENT
  Age: 31 Year
  Sex: Female
  Weight: 54.88 kg

DRUGS (5)
  1. ENBREL [Suspect]
     Indication: PRODUCT USED FOR UNKNOWN INDICATION
     Dosage: 50 MG/ML, QWK
     Route: 058
  2. PRENATAL                           /01529801/ [Concomitant]
     Dosage: UNK
  3. OMEPRAZOL                          /00661201/ [Concomitant]
     Dosage: 10 MG, UNK
  4. TACLONEX [Concomitant]
     Dosage: UNK
  5. CALCIUM + VITAMIN D                /01483701/ [Concomitant]
     Dosage: UNK

REACTIONS (2)
  - Influenza like illness [Recovered/Resolved]
  - Injection site erythema [Unknown]
